FAERS Safety Report 4434189-5 (Version None)
Quarter: 2004Q3

REPORT INFORMATION
  Report Type: 
  Country: None (occurrence: None)
  Receive Date: 20040825
  Receipt Date: 20040818
  Transmission Date: 20050211
  Serious: Yes (Hospitalization)
  Sender: FDA-Public Use
  Company Number: 2004-08-0933

PATIENT
  Age: 57 Year
  Sex: Male
  Weight: 74 kg

DRUGS (1)
  1. DIPROSPAN (BETAMETHASONE SODIUM PHOSPHATE/ DIPROPIONA  INJECTABLE SUSP [Suspect]
     Indication: PRURITUS
     Dosage: 1 ML
     Dates: start: 20040720, end: 20040720

REACTIONS (5)
  - ASTHENIA [None]
  - CORONARY ARTERY DISEASE [None]
  - DIABETES MELLITUS [None]
  - HEPATITIS [None]
  - HYPERTENSION [None]
